FAERS Safety Report 4368483-3 (Version None)
Quarter: 2004Q2

REPORT INFORMATION
  Report Type: 
  Country: None (occurrence: None)
  Receive Date: 20040528
  Receipt Date: 20040519
  Transmission Date: 20050107
  Serious: Yes (Hospitalization, Other)
  Sender: FDA-Public Use
  Company Number: HQWYE046020MAY04

PATIENT
  Age: 56 Year
  Sex: Male

DRUGS (1)
  1. CYCLOSPORINE [Suspect]
     Indication: PROPHYLAXIS AGAINST TRANSPLANT REJECTION
     Dosage: 200 MG 1X PER 1 DAY; UNKNOWN
     Route: 065
     Dates: start: 20040202

REACTIONS (2)
  - BLOOD CREATININE INCREASED [None]
  - THROMBOPHLEBITIS [None]
